FAERS Safety Report 7154314-5 (Version None)
Quarter: 2010Q4

REPORT INFORMATION
  Report Type: 
  Country: None (occurrence: None)
  Receive Date: 20101213
  Receipt Date: 20101130
  Transmission Date: 20110411
  Serious: Yes (Other)
  Sender: FDA-Public Use
  Company Number: US-MYLANLABS-2010S1022162

PATIENT
  Age: 91 Year
  Sex: Female

DRUGS (1)
  1. MERCAPTOPURINE [Suspect]
     Indication: AUTOIMMUNE HEPATITIS
     Route: 065

REACTIONS (1)
  - EXTRANODAL MARGINAL ZONE B-CELL LYMPHOMA (MALT TYPE) [None]
